FAERS Safety Report 11649353 (Version 1)
Quarter: 2015Q4

REPORT INFORMATION
  Report Type: Spontaneous
  Country: CA (occurrence: CA)
  Receive Date: 20151021
  Receipt Date: 20151021
  Transmission Date: 20160304
  Serious: Yes (Other)
  Sender: FDA-Public Use
  Company Number: CA-TEVA-601558ACC

PATIENT
  Age: 71 Year
  Sex: Female

DRUGS (3)
  1. BACLOFEN. [Suspect]
     Active Substance: BACLOFEN
     Indication: DYSTONIA
     Dosage: 30 MILLIGRAM DAILY;
     Route: 048
  2. LEVODOPA [Concomitant]
     Active Substance: LEVODOPA
  3. COMTAN [Concomitant]
     Active Substance: ENTACAPONE

REACTIONS (3)
  - Condition aggravated [Recovered/Resolved]
  - Bradykinesia [Recovered/Resolved]
  - Parkinson^s disease [Recovered/Resolved]
